FAERS Safety Report 21018216 (Version 1)
Quarter: 2022Q2

REPORT INFORMATION
  Report Type: Spontaneous
  Country: US (occurrence: US)
  Receive Date: 20220628
  Receipt Date: 20220628
  Transmission Date: 20220721
  Serious: Yes (Other)
  Sender: FDA-Public Use
  Company Number: US-PFIZER INC-202200898815

PATIENT

DRUGS (2)
  1. CHANTIX [Suspect]
     Active Substance: VARENICLINE TARTRATE
     Dosage: UNK
  2. VARENICLINE [Suspect]
     Active Substance: VARENICLINE
     Dosage: 1 MG

REACTIONS (4)
  - Brain hypoxia [Unknown]
  - Dizziness [Unknown]
  - Chest discomfort [Unknown]
  - Dyspnoea exertional [Unknown]
